FAERS Safety Report 10052322 (Version 1)
Quarter: 2014Q2

REPORT INFORMATION
  Report Type: Spontaneous
  Country: US (occurrence: None)
  Receive Date: 20140401
  Receipt Date: 20140401
  Transmission Date: 20141212
  Serious: Yes (Other)
  Sender: FDA-Public Use
  Company Number: None

PATIENT
  Age: 38 Year
  Sex: Male
  Weight: 92.99 kg

DRUGS (1)
  1. TESTOSTERONE CYPIONATE [Suspect]
     Indication: BLOOD TESTOSTERONE DECREASED
     Dosage: INTO THE MUSCLE

REACTIONS (7)
  - Hypertension [None]
  - Polycythaemia [None]
  - Vision blurred [None]
  - Tendon disorder [None]
  - Tendon rupture [None]
  - Gingival swelling [None]
  - Gingival bleeding [None]
